FAERS Safety Report 6058936-4 (Version None)
Quarter: 2009Q1

REPORT INFORMATION
  Report Type: 
  Country: None (occurrence: None)
  Receive Date: 20090128
  Receipt Date: 20090128
  Transmission Date: 20090719
  Serious: Yes (Other)
  Sender: FDA-Public Use
  Company Number: None

PATIENT
  Sex: Female
  Weight: 65.7716 kg

DRUGS (1)
  1. METOPROLOL SUCCINATE [Suspect]
     Indication: SUPRAVENTRICULAR TACHYCARDIA
     Dosage: ONE DAY PO
     Route: 048
     Dates: start: 20080901, end: 20090122

REACTIONS (8)
  - AMNESIA [None]
  - ANXIETY [None]
  - BALANCE DISORDER [None]
  - DISTURBANCE IN ATTENTION [None]
  - NAUSEA [None]
  - PALPITATIONS [None]
  - PRODUCT QUALITY ISSUE [None]
  - TACHYCARDIA [None]
